FAERS Safety Report 6506207-1 (Version None)
Quarter: 2009Q4

REPORT INFORMATION
  Report Type: 
  Country: None (occurrence: None)
  Receive Date: 20091218
  Receipt Date: 20091211
  Transmission Date: 20100525
  Serious: Yes (Other)
  Sender: FDA-Public Use
  Company Number: GB-PFIZER INC-2008013910

PATIENT
  Age: 65 Year
  Sex: Male
  Weight: 77 kg

DRUGS (5)
  1. CHAMPIX [Suspect]
     Indication: SMOKING CESSATION THERAPY
     Dosage: 1 MG, UNK
     Route: 048
     Dates: start: 20080110, end: 20080123
  2. ACETYLSALICYLIC ACID [Concomitant]
     Dosage: 1 DF, 1X/DAY
     Route: 048
     Dates: start: 20050614
  3. BENDROFLUAZIDE [Concomitant]
     Dosage: 1 DF, 1X/DAY
     Route: 048
     Dates: start: 20050614
  4. CITALOPRAM HYDROBROMIDE [Concomitant]
     Indication: ANXIETY
     Dosage: 1 DF, 1X/DAY
     Route: 048
     Dates: start: 20040901
  5. ZANIDIP [Concomitant]
     Dosage: 1 DF, 1X/DAY
     Route: 048
     Dates: start: 20050615

REACTIONS (3)
  - CRYING [None]
  - DEPRESSION [None]
  - SOMNOLENCE [None]
